FAERS Safety Report 9908484 (Version 3)
Quarter: 2014Q2

REPORT INFORMATION
  Report Type: Report from Study
  Country: JP (occurrence: JP)
  Receive Date: 20140219
  Receipt Date: 20140623
  Transmission Date: 20141212
  Serious: Yes (Hospitalization)
  Sender: FDA-Public Use
  Company Number: JP-JNJFOC-20140208066

PATIENT
  Age: 48 Year
  Sex: Male
  Weight: 64 kg

DRUGS (13)
  1. STELARA [Suspect]
     Indication: PSORIASIS
     Route: 058
     Dates: start: 20120829, end: 20120829
  2. STELARA [Suspect]
     Indication: PSORIASIS
     Route: 058
     Dates: start: 20131023, end: 20131023
  3. STELARA [Suspect]
     Indication: PSORIASIS
     Route: 058
     Dates: start: 20120509, end: 20120509
  4. STELARA [Suspect]
     Indication: PSORIASIS
     Route: 058
     Dates: start: 20121121, end: 20121121
  5. STELARA [Suspect]
     Indication: PSORIASIS
     Route: 058
     Dates: start: 20130213, end: 20130213
  6. STELARA [Suspect]
     Indication: PSORIASIS
     Route: 058
     Dates: start: 20130508, end: 20130508
  7. STELARA [Suspect]
     Indication: PSORIASIS
     Route: 058
     Dates: start: 20130731, end: 20130731
  8. STELARA [Suspect]
     Indication: PSORIASIS
     Route: 058
     Dates: start: 20120606, end: 20120606
  9. NEORAL [Suspect]
     Indication: PSORIASIS
     Route: 048
     Dates: start: 200811, end: 201207
  10. ANTEBATE [Concomitant]
     Indication: PSORIASIS
     Route: 061
     Dates: start: 2004
  11. DOVONEX [Concomitant]
     Indication: PSORIASIS
     Route: 061
     Dates: start: 2004
  12. ANTEBATE [Concomitant]
     Indication: PSORIASIS
     Route: 061
     Dates: start: 2004
  13. OXAROL [Concomitant]
     Indication: PSORIASIS
     Route: 061
     Dates: start: 2004

REACTIONS (1)
  - Squamous cell carcinoma of the tongue [Recovered/Resolved]
